FAERS Safety Report 8790747 (Version 1)
Quarter: 2012Q4

REPORT INFORMATION
  Report Type: Spontaneous
  Country: US (occurrence: None)
  Receive Date: 20120913
  Receipt Date: 20120913
  Transmission Date: 20130627
  Serious: Yes (Hospitalization)
  Sender: FDA-Public Use
  Company Number: None

PATIENT
  Age: 59 Year
  Sex: Female
  Weight: 80.15 kg

DRUGS (7)
  1. ISONIAZID [Suspect]
     Indication: TB
     Route: 048
  2. ATENOLOL [Concomitant]
  3. QUINAPRIL [Concomitant]
  4. EZETIMIDE-SIMVASTATIN [Concomitant]
  5. PANTOPRAZOLE [Concomitant]
  6. INSULIN [Concomitant]
  7. PYRIDOXINE [Concomitant]

REACTIONS (4)
  - Acute hepatic failure [None]
  - Fatigue [None]
  - Nausea [None]
  - Vomiting [None]
